FAERS Safety Report 17718516 (Version 2)
Quarter: 2020Q3

REPORT INFORMATION
  Report Type: Spontaneous
  Country: US (occurrence: US)
  Receive Date: 20200428
  Receipt Date: 20200724
  Transmission Date: 20201102
  Serious: Yes (Other)
  Sender: FDA-Public Use
  Company Number: US-JNJFOC-20200429226

PATIENT
  Age: 38 Year
  Sex: Female
  Weight: 79.45 kg

DRUGS (2)
  1. REMICADE [Suspect]
     Active Substance: INFLIXIMAB
     Dosage: 10 ML OR MG
     Route: 042
  2. REMICADE [Suspect]
     Active Substance: INFLIXIMAB
     Indication: CROHN^S DISEASE
     Dosage: 6 OR 6 ML OR MG
     Route: 042
     Dates: start: 2018

REACTIONS (9)
  - Skin exfoliation [Unknown]
  - Constipation [Unknown]
  - Off label use [Unknown]
  - Abortion spontaneous [Recovered/Resolved]
  - Exposure during pregnancy [Recovered/Resolved]
  - Product use issue [Unknown]
  - Mass [Unknown]
  - Ear pruritus [Unknown]
  - Uterine leiomyoma [Unknown]

NARRATIVE: CASE EVENT DATE: 201902
